FAERS Safety Report 10152407 (Version 1)
Quarter: 2014Q2

REPORT INFORMATION
  Report Type: Spontaneous
  Country: US (occurrence: None)
  Receive Date: 20140502
  Receipt Date: 20140502
  Transmission Date: 20141212
  Serious: Yes (Disabling)
  Sender: FDA-Public Use
  Company Number: None

PATIENT
  Age: 41 Year
  Sex: Female
  Weight: 56.7 kg

DRUGS (1)
  1. CIPROFLOXACIN 500MG DR REDDY^S LAB [Suspect]
     Indication: URINARY TRACT INFECTION
     Route: 048
     Dates: start: 20140124, end: 20140127

REACTIONS (13)
  - Hypersensitivity [None]
  - Muscle twitching [None]
  - Abdominal pain [None]
  - Depersonalisation [None]
  - Depression [None]
  - Panic attack [None]
  - Insomnia [None]
  - Myalgia [None]
  - Tendon pain [None]
  - Neuralgia [None]
  - Pain [None]
  - Asthenia [None]
  - Memory impairment [None]
